FAERS Safety Report 16891538 (Version 1)
Quarter: 2019Q4

REPORT INFORMATION
  Report Type: Spontaneous
  Country: ES (occurrence: ES)
  Receive Date: 20191007
  Receipt Date: 20191007
  Transmission Date: 20200122
  Serious: Yes (Other)
  Sender: FDA-Public Use
  Company Number: ES-BRISTOL-MYERS SQUIBB COMPANY-BMS-2019-094530

PATIENT
  Age: 74 Year
  Sex: Male
  Weight: 67 kg

DRUGS (1)
  1. NIVOLUMAB [Suspect]
     Active Substance: NIVOLUMAB
     Indication: LUNG NEOPLASM MALIGNANT
     Dosage: 240 MILLIGRAM
     Route: 042
     Dates: start: 20181207, end: 20190819

REACTIONS (2)
  - Immune-mediated pneumonitis [Recovering/Resolving]
  - Polyarthritis [Recovered/Resolved]

NARRATIVE: CASE EVENT DATE: 20190722
